FAERS Safety Report 5612013-2 (Version None)
Quarter: 2008Q1

REPORT INFORMATION
  Report Type: 
  Country: None (occurrence: None)
  Receive Date: 20080128
  Receipt Date: 20080124
  Transmission Date: 20080703
  Serious: Yes (Disabling)
  Sender: FDA-Public Use
  Company Number: E3810-01478-SPO-JP

PATIENT
  Age: 68 Year
  Sex: Female

DRUGS (4)
  1. RABEPRAZOLE SODIUM [Suspect]
     Indication: GASTRIC ULCER
     Dosage: 10 MG, 1 IN 1 D, ORAL
     Route: 048
     Dates: start: 20071210, end: 20071213
  2. ZETIA [Concomitant]
  3. OLMETEC (OLMESARTAN) [Concomitant]
  4. ANSATUR (ETHYL ICOSAPENTATE) [Concomitant]

REACTIONS (6)
  - DIZZINESS [None]
  - FACIAL PALSY [None]
  - LACUNAR INFARCTION [None]
  - MOBILITY DECREASED [None]
  - PARALYSIS [None]
  - VISION BLURRED [None]
